FAERS Safety Report 7166333-3 (Version None)
Quarter: 2010Q4

REPORT INFORMATION
  Report Type: 
  Country: None (occurrence: None)
  Receive Date: 20101216
  Receipt Date: 20100916
  Transmission Date: 20110411
  Serious: No
  Sender: FDA-Public Use
  Company Number: US-ABBOTT-10P-163-0672379-00

PATIENT
  Sex: Male
  Weight: 86.26 kg

DRUGS (4)
  1. TRILIPIX [Suspect]
     Indication: BLOOD TRIGLYCERIDES INCREASED
     Dosage: IN MORNING - PATIENT WORKS NIGHTS
     Dates: start: 20090801
  2. TRILIPIX [Suspect]
     Indication: LOW DENSITY LIPOPROTEIN DECREASED
  3. FISH OIL [Concomitant]
     Indication: PRODUCT USED FOR UNKNOWN INDICATION
  4. OMEPRAZOLE [Concomitant]
     Indication: PRODUCT USED FOR UNKNOWN INDICATION

REACTIONS (2)
  - BLOOD TRIGLYCERIDES ABNORMAL [None]
  - LOW DENSITY LIPOPROTEIN [None]
